FAERS Safety Report 23973709 (Version 1)
Quarter: 2024Q2

REPORT INFORMATION
  Report Type: Spontaneous
  Country: US (occurrence: None)
  Receive Date: 20240613
  Receipt Date: 20240613
  Transmission Date: 20240715
  Serious: No
  Sender: FDA-Public Use
  Company Number: US-MDD US Operations-MDD202402-000504

PATIENT
  Age: 84 Year
  Sex: Male
  Weight: 90.71 kg

DRUGS (23)
  1. APOKYN [Suspect]
     Active Substance: APOMORPHINE HYDROCHLORIDE
     Indication: Parkinson^s disease
     Dates: start: 20240202
  2. APOKYN [Suspect]
     Active Substance: APOMORPHINE HYDROCHLORIDE
     Indication: On and off phenomenon
     Dosage: NOT PROVIDED
     Route: 058
     Dates: start: 20240307
  3. APOKYN [Suspect]
     Active Substance: APOMORPHINE HYDROCHLORIDE
     Dosage: (2MG) 3X A DAY
     Route: 058
     Dates: start: 202402
  4. APOKYN [Suspect]
     Active Substance: APOMORPHINE HYDROCHLORIDE
     Dosage: 3 MG (DO NOT EXCEED 5 DOSES PER DAY)
     Route: 058
     Dates: start: 20240302
  5. APOKYN [Suspect]
     Active Substance: APOMORPHINE HYDROCHLORIDE
     Dosage: NOT PROVIDED
     Route: 058
     Dates: start: 202403, end: 20240327
  6. CARBIDOPA\LEVODOPA [Concomitant]
     Active Substance: CARBIDOPA\LEVODOPA
     Dosage: NOT PROVIDED
  7. Lomax [Concomitant]
     Dosage: NOT PROVIDED
  8. TIGAN [Concomitant]
     Active Substance: TRIMETHOBENZAMIDE HYDROCHLORIDE
     Dosage: NOT PROVIDED
  9. MINERALS\VITAMINS [Concomitant]
     Active Substance: MINERALS\VITAMINS
     Dosage: NOT PROVIDED
  10. MELATONIN [Concomitant]
     Active Substance: MELATONIN
     Dosage: NOT PROVIDED
  11. VITAMIN B12 [Concomitant]
     Active Substance: CYANOCOBALAMIN
     Dosage: NOT PROVIDED
  12. VITAMIN D3 [Concomitant]
     Active Substance: CHOLECALCIFEROL
     Dosage: NOT PROVIDED
  13. TAMSULOSIN HYDROCHLORIDE [Concomitant]
     Active Substance: TAMSULOSIN HYDROCHLORIDE
     Dosage: NOT PROVIDED
  14. OXYGEN [Concomitant]
     Active Substance: OXYGEN
     Dosage: NOT PROVIDED
  15. CLARITIN [Concomitant]
     Active Substance: LORATADINE
     Dosage: NOT PROVIDED
  16. XOPENEX [Concomitant]
     Active Substance: LEVALBUTEROL HYDROCHLORIDE
     Dosage: AD
  17. PULMICORT FLEXHALER [Concomitant]
     Active Substance: BUDESONIDE
     Dosage: NOT PROVIDED
  18. XARELTO [Concomitant]
     Active Substance: RIVAROXABAN
     Dosage: NOT PROVIDED
  19. PANTOPRAZOLE SODIUM [Concomitant]
     Active Substance: PANTOPRAZOLE SODIUM
     Dosage: NOT PROVIDED
  20. LEVOTHYROXINE SODIUM [Concomitant]
     Active Substance: LEVOTHYROXINE SODIUM
     Dosage: NOT PROVIDED
  21. ROPINIROLE HYDROCHLORIDE [Concomitant]
     Active Substance: ROPINIROLE HYDROCHLORIDE
     Dosage: NOT PROVIDED
  22. DULOXETINE HYDROCHLORIDE [Concomitant]
     Active Substance: DULOXETINE HYDROCHLORIDE
     Dosage: NOT PROVIDED
  23. MODAFINIL [Concomitant]
     Active Substance: MODAFINIL
     Dosage: NOT PROVIDED

REACTIONS (9)
  - Sleep disorder [Recovered/Resolved]
  - Gastrointestinal disorder [Unknown]
  - Mobility decreased [Unknown]
  - Dyskinesia [Unknown]
  - Nausea [Recovered/Resolved]
  - Somnolence [Recovered/Resolved]
  - Nausea [Unknown]
  - Fatigue [Unknown]
  - Drug ineffective [Unknown]

NARRATIVE: CASE EVENT DATE: 20240206
